APPROVED DRUG PRODUCT: SUTENT
Active Ingredient: SUNITINIB MALATE
Strength: EQ 37.5MG BASE
Dosage Form/Route: CAPSULE;ORAL
Application: N021938 | Product #004 | TE Code: AB
Applicant: CP PHARMACEUTICALS INTERNATIONAL CV
Approved: Mar 31, 2009 | RLD: Yes | RS: No | Type: RX